FAERS Safety Report 6858226-3 (Version None)
Quarter: 2010Q3

REPORT INFORMATION
  Report Type: 
  Country: None (occurrence: None)
  Receive Date: 20100719
  Receipt Date: 20080205
  Transmission Date: 20110219
  Serious: No
  Sender: FDA-Public Use
  Company Number: US-PFIZER INC-2008012071

PATIENT
  Sex: Female
  Weight: 62.1 kg

DRUGS (2)
  1. CHANTIX [Suspect]
     Indication: SMOKING CESSATION THERAPY
     Dates: start: 20080105, end: 20080201
  2. SYNTHROID [Concomitant]
     Indication: THYROID DISORDER

REACTIONS (6)
  - ABDOMINAL DISTENSION [None]
  - BREAST ATROPHY [None]
  - BREAST SWELLING [None]
  - FEELING ABNORMAL [None]
  - HYPOPHAGIA [None]
  - WEIGHT INCREASED [None]
